FAERS Safety Report 9247851 (Version 1)
Quarter: 2013Q1

REPORT INFORMATION
  Report Type: Spontaneous
  Country: US (occurrence: None)
  Receive Date: 20130305
  Receipt Date: 20130305
  Transmission Date: 20140127
  Serious: Yes (Other)
  Sender: FDA-Public Use
  Company Number: 163-21880-12052903

PATIENT
  Sex: 0

DRUGS (19)
  1. REVLIMID [Suspect]
     Indication: PLASMA CELL MYELOMA
     Dosage: 5 MG, 3 DAYS/WEEK-POST DIALYSIS, PO
     Route: 048
     Dates: start: 20120515
  2. CALCIUM ACETATE (CALCIUM ACETATE) (UNKNOWN) [Concomitant]
  3. LEVEMIR (INSULIN DETEMIR) (UNKNOWN) [Concomitant]
  4. XOPENEX (LEVOSALBUTAMOL) (UNKNOWN) [Concomitant]
  5. ADVAIR (SERETIDE MITE) (UNKNOWN) [Concomitant]
  6. OXYCONTIN (OXYCODONE HYDROCHLORIDE) (UNKNOWN) [Concomitant]
  7. DAILY-VITE (DAILY-VITE) (UNKNOWN) [Concomitant]
  8. DEXAMETHASONE (DEXAMETHASONE) (UNKNOWN) [Concomitant]
  9. LISINOPRIL (LISINOPRIL) (UNKNOWN) [Concomitant]
  10. METOCLOPRAMIDE (METOCLOPRAMIDE) (UNKNOWN) [Concomitant]
  11. ASPIRIN (ACETYLSALICYLIC ACID) (UNKNOWN) (ACETYLSALICYLIC ACID) [Concomitant]
  12. ASTELIN (AZELASTINE HYDROCHLORIDE) (UNKNOWN) [Concomitant]
  13. PRAVASTATIN (PRAVASTATIN) (UNKNOWN) [Concomitant]
  14. FLUOXETINE (FLUOXETINE) (UNKNOWN) [Concomitant]
  15. AMLODIPINE (AMLODIPINE) (UNKNOWN) [Concomitant]
  16. ONDANSETRON (ONDANSETRON) (UNKNOWN) [Concomitant]
  17. MULTIVITAMINS (MULTIVITAMINS) (UNKNOWN) [Concomitant]
  18. NEURONTIN (GABAPENTIN) (UNKNOWN) [Concomitant]
  19. NEURONTIN (GABAPENTIN) (UNKNOWN) [Concomitant]

REACTIONS (5)
  - Hallucination [None]
  - Dizziness [None]
  - Fatigue [None]
  - Pruritus [None]
  - Neuropathy peripheral [None]
